FAERS Safety Report 19943935 (Version 1)
Quarter: 2021Q4

REPORT INFORMATION
  Report Type: Spontaneous
  Country: US (occurrence: US)
  Receive Date: 20211007
  Receipt Date: 20211007
  Transmission Date: 20220304
  Serious: No
  Sender: FDA-Public Use
  Company Number: None

PATIENT
  Age: 83 Year
  Sex: Male

DRUGS (1)
  1. TERIPARATIDE [Suspect]
     Active Substance: TERIPARATIDE
     Dosage: ?          OTHER DOSE:250MCG/ML;
     Route: 058
     Dates: start: 201709, end: 201909

REACTIONS (3)
  - Depressed level of consciousness [None]
  - Pain [None]
  - Blue toe syndrome [None]

NARRATIVE: CASE EVENT DATE: 20210920
